FAERS Safety Report 5052029-0 (Version None)
Quarter: 2006Q3

REPORT INFORMATION
  Report Type: 
  Country: None (occurrence: None)
  Receive Date: 20060711
  Receipt Date: 20060706
  Transmission Date: 20061208
  Serious: Yes (Other)
  Sender: FDA-Public Use
  Company Number: DE-2006-004161

PATIENT
  Age: 46 Year
  Sex: Female

DRUGS (1)
  1. PETIBELLE 30 (21) (DROSPIRENONE, ETHINYLESTRADIOL) FILM TABLET [Suspect]
     Dosage: ORAL
     Route: 048
     Dates: start: 20010101

REACTIONS (1)
  - BLOOD TRIGLYCERIDES INCREASED [None]
